FAERS Safety Report 26061012 (Version 1)
Quarter: 2025Q4

REPORT INFORMATION
  Report Type: Spontaneous
  Country: EU (occurrence: EU)
  Receive Date: 20251118
  Receipt Date: 20251118
  Transmission Date: 20260117
  Serious: Yes (Life-Threatening, Hospitalization, Other)
  Sender: ZAMBON
  Company Number: EU-ZAMBON-2025000904

PATIENT

DRUGS (2)
  1. FOSFOMYCIN TROMETHAMINE [Suspect]
     Active Substance: FOSFOMYCIN TROMETHAMINE
     Indication: Pollakiuria
     Dosage: 3 G, SINGLE
  2. FOSFOMYCIN TROMETHAMINE [Suspect]
     Active Substance: FOSFOMYCIN TROMETHAMINE
     Indication: Dysuria

REACTIONS (4)
  - Anaphylactic reaction [Unknown]
  - Kounis syndrome [Unknown]
  - Acute myocardial infarction [Unknown]
  - Off label use [Unknown]
